FAERS Safety Report 9660672 (Version 1)
Quarter: 2013Q4

REPORT INFORMATION
  Report Type: Spontaneous
  Country: US (occurrence: US)
  Receive Date: 20131031
  Receipt Date: 20131031
  Transmission Date: 20140711
  Serious: No
  Sender: FDA-Public Use
  Company Number: US-009507513-1310USA014234

PATIENT
  Sex: Female

DRUGS (2)
  1. NUVARING [Suspect]
     Indication: CONTRACEPTION
     Dosage: UNK
     Route: 067
     Dates: start: 20070711
  2. NUVARING [Suspect]
     Dosage: UNK
     Route: 067
     Dates: start: 2010, end: 20110221

REACTIONS (1)
  - Maternal exposure before pregnancy [Recovered/Resolved]
